FAERS Safety Report 6806048-1 (Version None)
Quarter: 2010Q2

REPORT INFORMATION
  Report Type: 
  Country: None (occurrence: None)
  Receive Date: 20100628
  Receipt Date: 20100628
  Transmission Date: 20101027
  Serious: Yes (Hospitalization)
  Sender: FDA-Public Use
  Company Number: None

PATIENT
  Age: 32 Year
  Sex: Female
  Weight: 62.5964 kg

DRUGS (1)
  1. LOW OGESTREL [Suspect]
     Indication: CONTRACEPTION
     Dosage: 1 PILL DAILY

REACTIONS (7)
  - DYSPNOEA [None]
  - FLUID RETENTION [None]
  - HYPERTENSION [None]
  - MIGRAINE [None]
  - NIGHT SWEATS [None]
  - PALPITATIONS [None]
  - WEIGHT INCREASED [None]
